FAERS Safety Report 15178294 (Version 1)
Quarter: 2018Q3

REPORT INFORMATION
  Report Type: Spontaneous
  Country: NL (occurrence: NL)
  Receive Date: 20180721
  Receipt Date: 20180721
  Transmission Date: 20181010
  Serious: Yes (Hospitalization, Other)
  Sender: FDA-Public Use
  Company Number: NL-AUROBINDO-AUR-APL-2018-008993

PATIENT

DRUGS (10)
  1. IRINOTECAN [Suspect]
     Active Substance: IRINOTECAN
     Indication: COLORECTAL CANCER
     Dosage: UNK
     Route: 065
     Dates: start: 20150730, end: 20150813
  2. OXALIPLATIN. [Suspect]
     Active Substance: OXALIPLATIN
     Indication: COLORECTAL CANCER
     Dosage: UNK
     Route: 065
     Dates: start: 20150730, end: 20150813
  3. BEVACIZUMAB. [Suspect]
     Active Substance: BEVACIZUMAB
     Indication: COLORECTAL CANCER
     Dosage: UNK
     Route: 065
     Dates: start: 20150730, end: 20150813
  4. LEUCOVORIN                         /00566701/ [Suspect]
     Active Substance: LEUCOVORIN
     Indication: COLORECTAL CANCER
     Dosage: UNK
     Route: 065
     Dates: start: 20150730, end: 20150813
  5. 5?FU                               /00098801/ [Suspect]
     Active Substance: FLUOROURACIL
     Indication: COLORECTAL CANCER
     Dosage: UNK
     Route: 065
     Dates: start: 20150730, end: 20150815
  6. OXALIPLATIN. [Suspect]
     Active Substance: OXALIPLATIN
     Dosage: DATE OF LAST DOSE ON 03/MAY/2018 ()
     Route: 065
     Dates: start: 20180503
  7. LEUCOVORIN                         /00566701/ [Suspect]
     Active Substance: LEUCOVORIN
     Dosage: DATE OF LAST DOSE ON 03/MAY/2018
     Route: 065
     Dates: start: 20180503
  8. IRINOTECAN [Suspect]
     Active Substance: IRINOTECAN
     Dosage: DATE OF LAST DOSE ON 03/MAY/2018 ()
     Route: 065
     Dates: start: 20180503
  9. BEVACIZUMAB. [Suspect]
     Active Substance: BEVACIZUMAB
     Dosage: DATE OF LAST DOSE ON 03/MAY/2018 ()
     Route: 042
     Dates: start: 20180503
  10. 5?FU                               /00098801/ [Suspect]
     Active Substance: FLUOROURACIL
     Dosage: DATE OF LAST DOSE ON 03/MAY/2018
     Route: 065
     Dates: start: 20180503

REACTIONS (3)
  - Abdominal pain [Recovering/Resolving]
  - Large intestinal obstruction [Recovered/Resolved with Sequelae]
  - Ileus [Recovering/Resolving]

NARRATIVE: CASE EVENT DATE: 20150820
